FAERS Safety Report 5919978-X (Version None)
Quarter: 2008Q4

REPORT INFORMATION
  Report Type: 
  Country: None (occurrence: None)
  Receive Date: 20081014
  Receipt Date: 20081003
  Transmission Date: 20090506
  Serious: Yes (Other)
  Sender: FDA-Public Use
  Company Number: 2008SP002409

PATIENT
  Age: 50 Year
  Sex: Female
  Weight: 30.8446 kg

DRUGS (2)
  1. LUNESTA [Suspect]
     Indication: INSOMNIA
     Dosage: 2MG;HS;ORAL, 1 MG;PRN;ORAL
     Route: 048
     Dates: start: 20070501
  2. LUNESTA [Suspect]
     Indication: INSOMNIA
     Dosage: 2MG;HS;ORAL, 1 MG;PRN;ORAL
     Route: 048
     Dates: start: 20080801

REACTIONS (6)
  - BASEDOW'S DISEASE [None]
  - CONDITION AGGRAVATED [None]
  - DRY MOUTH [None]
  - DYSGEUSIA [None]
  - INSOMNIA [None]
  - STAPHYLOCOCCAL INFECTION [None]
